FAERS Safety Report 5953869-3 (Version None)
Quarter: 2008Q4

REPORT INFORMATION
  Report Type: 
  Country: None (occurrence: None)
  Receive Date: 20081114
  Receipt Date: 20081106
  Transmission Date: 20090506
  Serious: Yes (Life-Threatening)
  Sender: FDA-Public Use
  Company Number: TR-ASTRAZENECA-2008SE05136

PATIENT
  Age: 56 Year
  Sex: Male
  Weight: 90 kg

DRUGS (2)
  1. TENORETIC 100 [Suspect]
     Indication: HYPERTENSION
     Route: 048
     Dates: start: 20060101
  2. CORASPIN [Concomitant]
     Route: 048
     Dates: start: 20070101

REACTIONS (4)
  - DRUG INEFFECTIVE [None]
  - HEADACHE [None]
  - HYPERTENSION [None]
  - PALPITATIONS [None]
